FAERS Safety Report 9513665 (Version 1)
Quarter: 2013Q1

REPORT INFORMATION
  Report Type: Spontaneous
  Country: US (occurrence: None)
  Receive Date: 20130305
  Receipt Date: 20130305
  Transmission Date: 20140127
  Serious: Yes (Other)
  Sender: FDA-Public Use
  Company Number: 163-21880-12110317

PATIENT
  Age: 67 Year
  Sex: Female

DRUGS (3)
  1. REVLIMID [Suspect]
     Indication: PLASMA CELL MYELOMA
     Dosage: 15 MG, 14 IN 14 D, PO
     Route: 048
     Dates: start: 20090813
  2. VELCADE [Concomitant]
  3. BLOOD (BLOOD AND RELATED PRODUCTS) (UNKNOWN) [Concomitant]

REACTIONS (6)
  - Blood potassium abnormal [None]
  - Sinusitis [None]
  - Diarrhoea [None]
  - Depression [None]
  - Pruritus [None]
  - Rash [None]
